FAERS Safety Report 5744241-X (Version None)
Quarter: 2008Q2

REPORT INFORMATION
  Report Type: 
  Country: None (occurrence: None)
  Receive Date: 20080520
  Receipt Date: 20080515
  Transmission Date: 20081010
  Serious: Yes (Hospitalization)
  Sender: FDA-Public Use
  Company Number: FR-AVENTIS-200811783FR

PATIENT
  Age: 83 Year
  Sex: Male

DRUGS (5)
  1. LASILIX                            /00032601/ [Suspect]
     Indication: RENAL FAILURE
     Route: 048
     Dates: end: 20080311
  2. ATACAND [Suspect]
     Indication: DRUG USE FOR UNKNOWN INDICATION
     Route: 048
  3. PLAVIX [Suspect]
     Indication: PROPHYLAXIS
     Route: 048
  4. HYPERIUM                           /00939801/ [Suspect]
     Indication: DRUG USE FOR UNKNOWN INDICATION
     Route: 048
  5. UMULINE                            /00646003/ [Suspect]
     Route: 058

REACTIONS (1)
  - DRUG RASH WITH EOSINOPHILIA AND SYSTEMIC SYMPTOMS [None]
